FAERS Safety Report 9442607 (Version 2)
Quarter: 2013Q3

REPORT INFORMATION
  Report Type: Spontaneous
  Country: US (occurrence: US)
  Receive Date: 20130806
  Receipt Date: 20130822
  Transmission Date: 20140515
  Serious: Yes (Other)
  Sender: FDA-Public Use
  Company Number: US-BAYER-2013-092907

PATIENT
  Age: 21 Year
  Sex: Female
  Weight: 62.59 kg

DRUGS (1)
  1. MIRENA [Suspect]
     Indication: CONTRACEPTION
     Dosage: 20 MCG/24HR, CONT
     Route: 015
     Dates: start: 20130523, end: 20130618

REACTIONS (4)
  - Uterine perforation [None]
  - Device related infection [None]
  - Abdominal pain [Recovering/Resolving]
  - Pelvic haematoma [Recovering/Resolving]
